FAERS Safety Report 10231819 (Version 5)
Quarter: 2016Q4

REPORT INFORMATION
  Report Type: Spontaneous
  Country: CA (occurrence: CA)
  Receive Date: 20140612
  Receipt Date: 20161017
  Transmission Date: 20170206
  Serious: Yes (Hospitalization, Other)
  Sender: FDA-Public Use
  Company Number: CA-ROCHE-1416720

PATIENT
  Sex: Female

DRUGS (2)
  1. XOLAIR [Suspect]
     Active Substance: OMALIZUMAB
     Indication: ASTHMA
     Route: 058
     Dates: start: 20131106
  2. XOLAIR [Suspect]
     Active Substance: OMALIZUMAB
     Route: 058
     Dates: start: 2016

REACTIONS (8)
  - Forced expiratory volume decreased [Unknown]
  - Lower respiratory tract infection [Unknown]
  - Asthma [Unknown]
  - Malaise [Recovering/Resolving]
  - Chest discomfort [Unknown]
  - Gait disturbance [Unknown]
  - Drug ineffective [Unknown]
  - Viral infection [Recovering/Resolving]
